FAERS Safety Report 8482138-5 (Version None)
Quarter: 2012Q3

REPORT INFORMATION
  Report Type: 
  Country: None (occurrence: None)
  Receive Date: 20120702
  Receipt Date: 20120626
  Transmission Date: 20120928
  Serious: Yes (Hospitalization, Other)
  Sender: FDA-Public Use
  Company Number: FR-PFIZER INC-2012152879

PATIENT
  Age: 51 Year
  Sex: Male

DRUGS (11)
  1. ATENOLOL [Concomitant]
     Dosage: 50 MG DAILY
  2. NEORAL [Concomitant]
     Dosage: 70 MG, 2X/DAY
  3. CELLCEPT [Concomitant]
     Dosage: 2 G DAILY
  4. LEVOTHYROXINE SODIUM [Concomitant]
     Dosage: 62.5 UG DAILY
  5. ACETAMINOPHEN [Concomitant]
     Dosage: 3 G DAILY
  6. ATORVASTATIN [Suspect]
     Dosage: UNK
     Route: 048
     Dates: end: 20120524
  7. OXAZEPAM [Concomitant]
     Dosage: 25-50 MG DAILY
  8. ASPIRIN [Concomitant]
     Dosage: 100 MG DAILY
  9. NEXIUM [Concomitant]
     Dosage: 20 MG DAILY
  10. PREDNISONE [Concomitant]
     Dosage: 12 MG DAILY
  11. ALLOPURINOL [Concomitant]
     Dosage: 100 MG DAILY

REACTIONS (3)
  - PANCREATITIS ACUTE [None]
  - GAMMA-GLUTAMYLTRANSFERASE INCREASED [None]
  - BLOOD CREATININE INCREASED [None]
